FAERS Safety Report 13347589 (Version 8)
Quarter: 2019Q3

REPORT INFORMATION
  Report Type: Report from Study
  Country: CN (occurrence: CN)
  Receive Date: 20170317
  Receipt Date: 20190910
  Transmission Date: 20191004
  Serious: Yes (Hospitalization, Other)
  Sender: FDA-Public Use
  Company Number: CN-GLAXOSMITHKLINE-CN2017032589

PATIENT
  Age: 34 Year
  Sex: Female
  Weight: 46 kg

DRUGS (1)
  1. BELIMUMAB [Suspect]
     Active Substance: BELIMUMAB
     Indication: LUPUS NEPHRITIS
     Dosage: 10 MG/KG, CYC
     Route: 042
     Dates: start: 20151110, end: 20170421

REACTIONS (1)
  - Thymoma [Recovered/Resolved]

NARRATIVE: CASE EVENT DATE: 20170306
